FAERS Safety Report 5563616-5 (Version None)
Quarter: 2007Q4

REPORT INFORMATION
  Report Type: 
  Country: None (occurrence: None)
  Receive Date: 20071214
  Receipt Date: 20071214
  Transmission Date: 20080405
  Serious: No
  Sender: FDA-Public Use
  Company Number: None

PATIENT
  Sex: Female
  Weight: 85.9566 kg

DRUGS (2)
  1. ZOCOR [Suspect]
     Indication: HYPERLIPIDAEMIA
     Dates: start: 20051215, end: 20070202
  2. PRAVACHOL [Suspect]
     Indication: DIABETES MELLITUS
     Dates: start: 20070207, end: 20070315

REACTIONS (2)
  - ALOPECIA [None]
  - OEDEMA PERIPHERAL [None]
